FAERS Safety Report 6529626-6 (Version None)
Quarter: 2010Q1

REPORT INFORMATION
  Report Type: 
  Country: None (occurrence: None)
  Receive Date: 20100104
  Receipt Date: 20091221
  Transmission Date: 20100710
  Serious: Yes (Hospitalization)
  Sender: FDA-Public Use
  Company Number: DSA_42033_2009

PATIENT
  Age: 64 Year
  Sex: Female

DRUGS (5)
  1. DILTIAZEM HYDROCHLORIDE [Suspect]
     Indication: HYPERTENSION
     Dosage: 200 MG QD ORAL
     Route: 048
     Dates: start: 20090601, end: 20090816
  2. TAREG [Concomitant]
  3. ANTRA [Concomitant]
  4. ASPIRIN [Concomitant]
  5. XANAX [Concomitant]

REACTIONS (3)
  - ABDOMINAL PAIN [None]
  - HEPATITIS ACUTE [None]
  - VOMITING [None]
